FAERS Safety Report 16383539 (Version 1)
Quarter: 2019Q2

REPORT INFORMATION
  Report Type: Spontaneous
  Country: CN (occurrence: CN)
  Receive Date: 20190603
  Receipt Date: 20190603
  Transmission Date: 20190711
  Serious: Yes (Other)
  Sender: FDA-Public Use
  Company Number: CN-PFIZER INC-2019230101

PATIENT
  Age: 83 Year
  Sex: Male
  Weight: 57.2 kg

DRUGS (2)
  1. CELECOXIB. [Suspect]
     Active Substance: CELECOXIB
     Indication: GOUTY ARTHRITIS
     Dosage: 200 MG, 2X/DAY
     Route: 048
     Dates: start: 20190422, end: 20190428
  2. CELECOXIB. [Suspect]
     Active Substance: CELECOXIB
     Indication: OSTEOARTHRITIS

REACTIONS (4)
  - Oedema [Recovering/Resolving]
  - Pleural effusion [Recovering/Resolving]
  - Hydrocele [Recovering/Resolving]
  - Pelvic fluid collection [Recovering/Resolving]

NARRATIVE: CASE EVENT DATE: 20190428
